FAERS Safety Report 7516223-9 (Version None)
Quarter: 2011Q2

REPORT INFORMATION
  Report Type: 
  Country: None (occurrence: None)
  Receive Date: 20110601
  Receipt Date: 20110527
  Transmission Date: 20111010
  Serious: No
  Sender: FDA-Public Use
  Company Number: US-PFIZER INC-2011115537

PATIENT
  Sex: Male
  Weight: 93.4 kg

DRUGS (1)
  1. ADVIL LIQUI-GELS [Suspect]
     Indication: PAIN IN EXTREMITY
     Dosage: 2 DF, UNK
     Route: 065
     Dates: start: 20110524

REACTIONS (1)
  - DRUG EFFECT DECREASED [None]
